FAERS Safety Report 18957806 (Version 1)
Quarter: 2021Q1

REPORT INFORMATION
  Report Type: Spontaneous
  Country: US (occurrence: US)
  Receive Date: 20210302
  Receipt Date: 20210302
  Transmission Date: 20210420
  Serious: No
  Sender: FDA-Public Use
  Company Number: None

PATIENT
  Age: 63 Year
  Sex: Male
  Weight: 142.9 kg

DRUGS (2)
  1. CYTARABINE. [Suspect]
     Active Substance: CYTARABINE
     Dates: end: 20210216
  2. DAUNORUBICIN [Suspect]
     Active Substance: DAUNORUBICIN
     Dates: end: 20210214

REACTIONS (6)
  - Haemorrhage [None]
  - Pain [None]
  - Hypophagia [None]
  - Acne [None]
  - Mucosal inflammation [None]
  - Pyrexia [None]

NARRATIVE: CASE EVENT DATE: 20210218
